FAERS Safety Report 8070445-X (Version None)
Quarter: 2012Q1

REPORT INFORMATION
  Report Type: 
  Country: None (occurrence: None)
  Receive Date: 20120125
  Receipt Date: 20120110
  Transmission Date: 20120608
  Serious: Yes (Life-Threatening, Disabling)
  Sender: FDA-Public Use
  Company Number: JP-CTI_01421_2011

PATIENT
  Sex: Female

DRUGS (9)
  1. MEIACT MS - CEFDITOREN PIVOXIL [Suspect]
     Dosage: DAILY DOSE 0.99 G
     Route: 048
     Dates: start: 20110418, end: 20110502
  2. BETAMETHASONE [Suspect]
     Indication: INFANTILE ASTHMA
     Dosage: DAILY DOSE 4 ML
     Route: 048
     Dates: start: 20110404, end: 20110422
  3. PROCATEROL HCL [Concomitant]
     Indication: INFANTILE ASTHMA
     Dosage: DAILY DOSE 0.4 G
     Dates: start: 20110401, end: 20110502
  4. MEIACT MS - CEFDITOREN PIVOXIL [Suspect]
     Indication: UPPER RESPIRATORY TRACT INFLAMMATION
     Dosage: DAILY DOSE 1.20 G
     Route: 048
     Dates: start: 20110404
  5. ZYRTEC [Suspect]
     Indication: ECZEMA
     Dosage: DAILY DOSE 0.4 G
     Route: 048
     Dates: start: 20110427, end: 20110502
  6. MEIACT MS - CEFDITOREN PIVOXIL [Suspect]
     Dosage: DAILY DOSE 0.99 G
     Route: 048
     Dates: start: 20110401, end: 20110404
  7. AZITHROMYCIN HYDRATE [Concomitant]
     Indication: UPPER RESPIRATORY TRACT INFLAMMATION
     Dosage: DAILY DOSE 0.8 G
     Dates: start: 20110502, end: 20110502
  8. CLEMASTINE FUMARATE [Suspect]
     Indication: UPPER RESPIRATORY TRACT INFLAMMATION
     Dosage: DAILY DOSE 0.30 G
     Route: 048
     Dates: start: 20110401, end: 20110502
  9. CARBOCISTEINE [Concomitant]
     Indication: UPPER RESPIRATORY TRACT INFLAMMATION
     Dosage: DAILY DOSE 0.6 G
     Dates: start: 20110401, end: 20110502

REACTIONS (10)
  - DIZZINESS [None]
  - PYREXIA [None]
  - FALL [None]
  - ENCEPHALOPATHY [None]
  - CARNITINE DEFICIENCY [None]
  - ACIDOSIS [None]
  - HYPOGLYCAEMIA [None]
  - ADRENAL INSUFFICIENCY [None]
  - EPILEPSY [None]
  - ECZEMA [None]
